FAERS Safety Report 9333997 (Version 1)
Quarter: 2013Q2

REPORT INFORMATION
  Report Type: Spontaneous
  Country: US (occurrence: US)
  Receive Date: 20130606
  Receipt Date: 20130606
  Transmission Date: 20140414
  Serious: No
  Sender: FDA-Public Use
  Company Number: US-AMGEN-USASP2013010389

PATIENT
  Sex: Female

DRUGS (6)
  1. PROLIA [Suspect]
     Indication: OSTEOPOROSIS POSTMENOPAUSAL
     Dosage: UNK
     Dates: start: 201202
  2. BACLOFEN [Concomitant]
  3. PROCAN [Concomitant]
  4. TYLENOL                            /00020001/ [Concomitant]
  5. CALCIUM [Concomitant]
  6. VITAMIN D                          /00107901/ [Concomitant]

REACTIONS (3)
  - Pain [Unknown]
  - Pain in jaw [Unknown]
  - Back pain [Unknown]
